FAERS Safety Report 5524846-1 (Version None)
Quarter: 2007Q4

REPORT INFORMATION
  Report Type: 
  Country: None (occurrence: None)
  Receive Date: 20071116
  Receipt Date: 20071108
  Transmission Date: 20080405
  Serious: Yes (Death, Hospitalization, Disabling)
  Sender: FDA-Public Use
  Company Number: OSCN-NO-0711L-0448

PATIENT
  Age: 69 Year
  Sex: Female

DRUGS (1)
  1. OMNISCAN [Suspect]
     Indication: DRUG USE FOR UNKNOWN INDICATION
     Dosage: FOUR ADMINISTRATIONS BETWEEN 2003 AND 2005, I.V.
     Route: 042
     Dates: start: 20030101, end: 20050101

REACTIONS (3)
  - NEPHROGENIC SYSTEMIC FIBROSIS [None]
  - PERITONITIS [None]
  - SEPTIC SHOCK [None]
